FAERS Safety Report 9462565 (Version 1)
Quarter: 2013Q3

REPORT INFORMATION
  Report Type: Spontaneous
  Country: BR (occurrence: BR)
  Receive Date: 20130816
  Receipt Date: 20130816
  Transmission Date: 20140515
  Serious: Yes (Hospitalization, Other)
  Sender: FDA-Public Use
  Company Number: BR-BRISTOL-MYERS SQUIBB COMPANY-19180652

PATIENT
  Age: 67 Year
  Sex: Female
  Weight: 72 kg

DRUGS (12)
  1. BYETTA [Suspect]
     Indication: TYPE 2 DIABETES MELLITUS
     Dosage: INITIAL DOSE:5MCG BID
  2. GLUCOFORMIN [Suspect]
     Indication: DIABETES MELLITUS
  3. ACTOS [Suspect]
     Indication: DIABETES MELLITUS
  4. GLIFAGE XR [Concomitant]
     Indication: DIABETES MELLITUS
  5. INSULIN [Concomitant]
     Indication: DIABETES MELLITUS
  6. HIGROTON [Concomitant]
     Indication: HYPERTENSION
  7. DIOVAN [Concomitant]
     Indication: HYPERTENSION
  8. SYNTHROID [Concomitant]
     Indication: HYPOTHYROIDISM
  9. OMEPRAZOLE [Concomitant]
     Indication: GASTRIC DISORDER
  10. ALPRAZOLAM [Concomitant]
     Indication: DEPRESSION
  11. LEXAPRO [Concomitant]
     Indication: DEPRESSION
  12. ESTRADIOL [Concomitant]

REACTIONS (10)
  - Gastrointestinal disorder [Unknown]
  - Labyrinthitis [Unknown]
  - Incorrect product storage [Unknown]
  - Weight decreased [Unknown]
  - Cystitis [Not Recovered/Not Resolved]
  - Alopecia [Not Recovered/Not Resolved]
  - Onychoclasis [Not Recovered/Not Resolved]
  - Dizziness [Unknown]
  - Memory impairment [Unknown]
  - Haematochezia [Unknown]
